FAERS Safety Report 7210953-4 (Version None)
Quarter: 2011Q1

REPORT INFORMATION
  Report Type: 
  Country: None (occurrence: None)
  Receive Date: 20110105
  Receipt Date: 20101229
  Transmission Date: 20110831
  Serious: Yes (Other)
  Sender: FDA-Public Use
  Company Number: A0898622A

PATIENT
  Age: 35 Year
  Sex: Female

DRUGS (2)
  1. PROMACTA [Suspect]
     Dosage: 50MG PER DAY
     Route: 048
     Dates: start: 20101101
  2. UNKNOWN [Concomitant]

REACTIONS (2)
  - MENORRHAGIA [None]
  - PLATELET COUNT DECREASED [None]
